FAERS Safety Report 7110448-2 (Version None)
Quarter: 2010Q4

REPORT INFORMATION
  Report Type: 
  Country: None (occurrence: None)
  Receive Date: 20101116
  Receipt Date: 20101116
  Transmission Date: 20110411
  Serious: Yes (Life-Threatening)
  Sender: FDA-Public Use
  Company Number: None

PATIENT
  Age: 34 Year
  Sex: Male
  Weight: 68.0396 kg

DRUGS (4)
  1. TOPIRAMATE [Suspect]
     Indication: EPILEPSY
     Dosage: 200 MG. 2X PER DAY PO
     Route: 048
     Dates: start: 20081115, end: 20090115
  2. TOPIRAMATE [Suspect]
     Indication: GRAND MAL CONVULSION
     Dosage: 200 MG. 2X PER DAY PO
     Route: 048
     Dates: start: 20081115, end: 20090115
  3. VALPROIC ACID 250 MG PER PILL GENERIC--MANUFACTURER UNKNOWN [Suspect]
     Indication: EPILEPSY
     Dosage: 500 MG 2X PER DAY PO
     Route: 048
     Dates: start: 20081115, end: 20090115
  4. VALPROIC ACID 250 MG PER PILL GENERIC--MANUFACTURER UNKNOWN [Suspect]
     Indication: GRAND MAL CONVULSION
     Dosage: 500 MG 2X PER DAY PO
     Route: 048
     Dates: start: 20081115, end: 20090115

REACTIONS (2)
  - AURA [None]
  - PRODUCT SUBSTITUTION ISSUE [None]
